FAERS Safety Report 7830209-6 (Version None)
Quarter: 2011Q4

REPORT INFORMATION
  Report Type: 
  Country: None (occurrence: None)
  Receive Date: 20111021
  Receipt Date: 20111011
  Transmission Date: 20120403
  Serious: Yes (Hospitalization)
  Sender: FDA-Public Use
  Company Number: PHHY2011TW89013

PATIENT
  Sex: Female
  Weight: 56 kg

DRUGS (4)
  1. CERTICAN [Suspect]
     Indication: RENAL TRANSPLANT
     Dosage: 1.5 MG, DAILY
     Route: 048
     Dates: start: 20101122
  2. PREDNISOLONE [Concomitant]
     Indication: RENAL TRANSPLANT
     Dosage: 2.5 MG, QD
     Dates: start: 20100729
  3. MYCOPHENOLATE MOFETIL [Concomitant]
     Indication: RENAL TRANSPLANT
     Dosage: 500 MG, QD
     Dates: start: 20100729
  4. TACROLIMUS [Concomitant]
     Indication: RENAL TRANSPLANT
     Dosage: 0.5 MG, QD
     Dates: start: 20100729

REACTIONS (3)
  - ILIUM FRACTURE [None]
  - ACETABULUM FRACTURE [None]
  - ROAD TRAFFIC ACCIDENT [None]
